FAERS Safety Report 9265871 (Version 3)
Quarter: 2013Q2

REPORT INFORMATION
  Report Type: Spontaneous
  Country: DE (occurrence: DE)
  Receive Date: 20130501
  Receipt Date: 20130520
  Transmission Date: 20140414
  Serious: Yes (Hospitalization, Other)
  Sender: FDA-Public Use
  Company Number: DE-VERTEX PHARMACEUTICALS INC-2013-005591

PATIENT
  Age: 53 Year
  Sex: Female
  Weight: 95 kg

DRUGS (8)
  1. INCIVO [Suspect]
     Indication: CHRONIC HEPATITIS C
     Dosage: 375 MG TABLETS
     Route: 048
     Dates: start: 20130117, end: 20130411
  2. PEGASYS [Suspect]
     Indication: CHRONIC HEPATITIS C
     Dosage: DOSAGE FORM: UNSPECIFIED
     Route: 058
     Dates: start: 20130117, end: 20130418
  3. COPEGUS [Suspect]
     Indication: CHRONIC HEPATITIS C
     Dosage: DOSAGE FORM: TABLETS, 200 MG TABLETS
     Route: 048
     Dates: start: 20130322, end: 20130328
  4. COPEGUS [Suspect]
     Dosage: 1200 MG, QD  (200 MG TABLETS)
     Route: 048
     Dates: start: 20130117, end: 20130321
  5. CELSENTRI [Concomitant]
     Indication: HIV INFECTION
     Dosage: DOSAGE FORM: TABLETS, 300 MG TABLETS
     Route: 048
     Dates: start: 20120811
  6. CELSENTRI [Concomitant]
     Dosage: DOSAGE FORM: TABLETS
     Route: 048
     Dates: start: 20120821
  7. ISENTRESS [Concomitant]
     Indication: HIV INFECTION
     Dosage: DOSAGE FORM: TABLETS, 400 MG TABLETS
     Route: 048
     Dates: start: 20120821
  8. ISENTRESS [Concomitant]
     Dosage: DOSAGE FORM: TABLETS
     Route: 048
     Dates: start: 20020821

REACTIONS (4)
  - Anaemia [Recovered/Resolved]
  - Rash [Recovered/Resolved]
  - Rash [Recovered/Resolved]
  - Swelling face [Recovered/Resolved]
